FAERS Safety Report 14279583 (Version 1)
Quarter: 2017Q4

REPORT INFORMATION
  Report Type: Spontaneous
  Country: US (occurrence: US)
  Receive Date: 20171212
  Receipt Date: 20171212
  Transmission Date: 20180321
  Serious: Yes (Hospitalization, Other)
  Sender: FDA-Public Use
  Company Number: US-TARO-2017TAR01044

PATIENT
  Age: 67 Year
  Sex: Female
  Weight: 62.13 kg

DRUGS (8)
  1. WARFARIN SODIUM TABLETS USP 5MG [Suspect]
     Active Substance: WARFARIN SODIUM
     Dosage: 5 MG, EVERY 48 HOURS
     Route: 048
     Dates: start: 20171130
  2. INDERAL [Suspect]
     Active Substance: PROPRANOLOL HYDROCHLORIDE
     Dosage: UNK
     Dates: end: 201711
  3. PROBIOTICS [Concomitant]
     Active Substance: PROBIOTICS NOS
  4. WARFARIN SODIUM TABLETS USP 5MG [Suspect]
     Active Substance: WARFARIN SODIUM
     Indication: CEREBROVASCULAR ACCIDENT
     Dosage: 7.5 MG, 2X/WEEK
     Route: 048
     Dates: end: 20171129
  5. RYTHMOL [Concomitant]
     Active Substance: PROPAFENONE HYDROCHLORIDE
  6. WARFARIN SODIUM TABLETS USP 5MG [Suspect]
     Active Substance: WARFARIN SODIUM
     Indication: VENTRICULAR TACHYCARDIA
     Dosage: 5 MG, 5X/WEEK
     Route: 048
     Dates: end: 20171129
  7. WARFARIN SODIUM TABLETS USP 5MG [Suspect]
     Active Substance: WARFARIN SODIUM
     Indication: ATRIAL FIBRILLATION
     Dosage: 7.5 MG, EVERY 48 HOURS
     Route: 048
     Dates: start: 20171130
  8. ANASTROZOLE. [Suspect]
     Active Substance: ANASTROZOLE
     Indication: BREAST CANCER
     Dosage: 1 MG, 1X/DAY
     Dates: start: 20170921

REACTIONS (8)
  - Colitis [Recovered/Resolved]
  - Clostridium difficile infection [Recovered/Resolved]
  - Heart rate increased [Not Recovered/Not Resolved]
  - Urinary tract infection [Unknown]
  - Gastrointestinal infection [Recovered/Resolved]
  - Blood pressure decreased [Recovered/Resolved]
  - Breast cancer [Unknown]
  - Drug ineffective [Not Recovered/Not Resolved]

NARRATIVE: CASE EVENT DATE: 2017
